FAERS Safety Report 22330226 (Version 1)
Quarter: 2023Q2

REPORT INFORMATION
  Report Type: Spontaneous
  Country: US (occurrence: US)
  Receive Date: 20230517
  Receipt Date: 20230517
  Transmission Date: 20230722
  Serious: No
  Sender: FDA-Public Use
  Company Number: US-CADILA HEALTHCARE LIMITED-US-ZYDUS-084557

PATIENT

DRUGS (1)
  1. BOSENTAN [Suspect]
     Active Substance: BOSENTAN
     Indication: Product used for unknown indication
     Dosage: , UNK
     Route: 065
     Dates: start: 2022

REACTIONS (5)
  - Sleep disorder [Unknown]
  - Somnolence [Unknown]
  - Dyspnoea exertional [Unknown]
  - Panic reaction [Unknown]
  - Tachycardia [Unknown]
